FAERS Safety Report 5339602-7 (Version None)
Quarter: 2007Q2

REPORT INFORMATION
  Report Type: 
  Country: None (occurrence: None)
  Receive Date: 20070525
  Receipt Date: 20070510
  Transmission Date: 20071010
  Serious: Yes (Hospitalization)
  Sender: FDA-Public Use
  Company Number: 2007000872

PATIENT
  Age: 59 Year
  Sex: Female

DRUGS (5)
  1. TARCEVA [Suspect]
     Indication: LUNG NEOPLASM MALIGNANT
     Dosage: 150  MG (QD), ORAL
     Route: 048
     Dates: start: 20060201
  2. ZANTAC [Concomitant]
  3. DIOVAN [Concomitant]
  4. ZETIA [Concomitant]
  5. MULTIVITAMIN [Concomitant]

REACTIONS (8)
  - ANAEMIA [None]
  - ANOREXIA [None]
  - DIARRHOEA [None]
  - HYPOAESTHESIA [None]
  - PLEURAL EFFUSION [None]
  - PULMONARY EMBOLISM [None]
  - SKIN EXFOLIATION [None]
  - WEIGHT DECREASED [None]
